FAERS Safety Report 17422573 (Version 4)
Quarter: 2020Q3

REPORT INFORMATION
  Report Type: Spontaneous
  Country: US (occurrence: US)
  Receive Date: 20200215
  Receipt Date: 20200822
  Transmission Date: 20201102
  Serious: Yes (Other)
  Sender: FDA-Public Use
  Company Number: US-SHIRE-US202005750

PATIENT
  Sex: Male

DRUGS (2)
  1. ELAPRASE [Suspect]
     Active Substance: IDURSULFASE
     Indication: MUCOPOLYSACCHARIDOSIS II
     Dosage: 4 DOSAGE FORM, 1X/WEEK
     Route: 042
     Dates: start: 20140819
  2. ELAPRASE [Suspect]
     Active Substance: IDURSULFASE
     Dosage: 23 MILLIGRAM

REACTIONS (5)
  - Obesity [Unknown]
  - Illness [Unknown]
  - Inappropriate schedule of product administration [Unknown]
  - Seizure [Recovered/Resolved]
  - Body temperature increased [Unknown]
